FAERS Safety Report 6642332-2 (Version None)
Quarter: 2010Q1

REPORT INFORMATION
  Report Type: 
  Country: None (occurrence: None)
  Receive Date: 20100319
  Receipt Date: 20100311
  Transmission Date: 20100710
  Serious: Yes (Death)
  Sender: FDA-Public Use
  Company Number: JP-ROCHE-604107

PATIENT
  Sex: Female
  Weight: 68 kg

DRUGS (8)
  1. TOCILIZUMAB [Suspect]
     Indication: RHEUMATOID ARTHRITIS
     Route: 041
     Dates: start: 20081121, end: 20081121
  2. RHEUMATREX [Suspect]
     Indication: RHEUMATOID ARTHRITIS
     Route: 048
     Dates: end: 20081205
  3. RIMATIL [Concomitant]
     Route: 048
     Dates: end: 20081205
  4. PREDNISOLONE [Concomitant]
     Dosage: DOSE FORM: PERORAL AGENT
     Route: 048
     Dates: end: 20081205
  5. HYPEN [Concomitant]
     Route: 048
     Dates: end: 20081205
  6. FAMOTIDINE [Concomitant]
     Route: 048
     Dates: end: 20081205
  7. SELBEX [Concomitant]
     Route: 048
     Dates: end: 20081205
  8. FOLIC ACID [Concomitant]
     Dosage: ORAL FORMULATION (NOT OTHERWISE SPECIFIED)
     Route: 048
     Dates: end: 20081205

REACTIONS (5)
  - BILE DUCT CANCER [None]
  - HEPATIC CIRRHOSIS [None]
  - HEPATIC ENCEPHALOPATHY [None]
  - HEPATIC FUNCTION ABNORMAL [None]
  - JAUNDICE CHOLESTATIC [None]
